FAERS Safety Report 17179389 (Version 3)
Quarter: 2019Q4

REPORT INFORMATION
  Report Type: Spontaneous
  Country: FR (occurrence: FR)
  Receive Date: 20191219
  Receipt Date: 20191227
  Transmission Date: 20200122
  Serious: Yes (Other)
  Sender: FDA-Public Use
  Company Number: FR-PFIZER INC-2019544581

PATIENT
  Age: 20 Year
  Sex: Male

DRUGS (5)
  1. SECUKINUMAB. [Suspect]
     Active Substance: SECUKINUMAB
     Indication: PUSTULAR PSORIASIS
     Dosage: 300 MG, WEEKLY (IN THE 12 HOURS THAT FOLLOWED THIRD INJECTION)
     Route: 058
  2. DESLORATADINE. [Concomitant]
     Active Substance: DESLORATADINE
     Indication: PUSTULAR PSORIASIS
     Dosage: UNK
  3. ACITRETIN. [Suspect]
     Active Substance: ACITRETIN
     Indication: PUSTULAR PSORIASIS
     Dosage: 25 MG, 1X/DAY
     Route: 065
  4. METHOTREXATE SODIUM. [Suspect]
     Active Substance: METHOTREXATE SODIUM
     Indication: PUSTULAR PSORIASIS
     Dosage: 15 MG, WEEKLY
     Route: 065
  5. METHOTREXATE SODIUM. [Suspect]
     Active Substance: METHOTREXATE SODIUM
     Dosage: 20 MG, WEEKLY
     Route: 065

REACTIONS (3)
  - Anaphylactic reaction [Unknown]
  - Angioedema [Unknown]
  - Urticaria [Recovered/Resolved]
